FAERS Safety Report 6488001-3 (Version None)
Quarter: 2009Q4

REPORT INFORMATION
  Report Type: 
  Country: None (occurrence: None)
  Receive Date: 20091210
  Receipt Date: 20091201
  Transmission Date: 20100525
  Serious: Yes (Other)
  Sender: FDA-Public Use
  Company Number: PHHY2009JP47491

PATIENT
  Sex: Female
  Weight: 47 kg

DRUGS (5)
  1. ZOMETA [Suspect]
     Indication: METASTASES TO BONE
     Dosage: 4 MG DAILY
     Route: 042
     Dates: start: 20060711
  2. ZOMETA [Suspect]
     Dosage: ONCE EVERY THREE MONTHS
  3. AREDIA [Suspect]
     Indication: METASTASES TO BONE
     Dosage: 90 MG DAILY
     Route: 042
     Dates: start: 20050330, end: 20060711
  4. TAXOL [Concomitant]
  5. ZELODA [Concomitant]

REACTIONS (5)
  - DENTAL FISTULA [None]
  - GINGIVAL PAIN [None]
  - GINGIVAL SWELLING [None]
  - METASTASES TO LYMPH NODES [None]
  - OSTEOMYELITIS [None]
